FAERS Safety Report 10460141 (Version 3)
Quarter: 2014Q4

REPORT INFORMATION
  Report Type: Spontaneous
  Country: JP (occurrence: JP)
  Receive Date: 20140917
  Receipt Date: 20141009
  Transmission Date: 20150528
  Serious: Yes (Life-Threatening)
  Sender: FDA-Public Use
  Company Number: JP-SHIONOGI, INC-2014000886

PATIENT
  Age: 88 Year
  Sex: Female
  Weight: 33 kg

DRUGS (1)
  1. FINIBAX [Suspect]
     Active Substance: DORIPENEM MONOHYDRATE
     Indication: PNEUMONIA
     Dosage: 0.5 G, TID
     Route: 041
     Dates: start: 20140903, end: 20140905

REACTIONS (1)
  - Acute kidney injury [Recovering/Resolving]

NARRATIVE: CASE EVENT DATE: 20140905
